FAERS Safety Report 22381759 (Version 10)
Quarter: 2025Q4

REPORT INFORMATION
  Report Type: Report from Study
  Country: EU (occurrence: EU)
  Receive Date: 20230530
  Receipt Date: 20251209
  Transmission Date: 20260118
  Serious: Yes (Hospitalization, Other)
  Sender: TAKEDA
  Company Number: EU-TAKEDA-2023TUS040591

PATIENT
  Age: 74 Year
  Sex: Male

DRUGS (8)
  1. VELAGLUCERASE ALFA [Suspect]
     Active Substance: VELAGLUCERASE ALFA
     Indication: Gaucher^s disease
     Dosage: 6000 INTERNATIONAL UNIT, Q2WEEKS
  2. VELAGLUCERASE ALFA [Suspect]
     Active Substance: VELAGLUCERASE ALFA
     Dosage: 6000 INTERNATIONAL UNIT, Q2WEEKS
  3. VELAGLUCERASE ALFA [Suspect]
     Active Substance: VELAGLUCERASE ALFA
     Dosage: 6000 INTERNATIONAL UNIT, Q2WEEKS
  4. VELAGLUCERASE ALFA [Suspect]
     Active Substance: VELAGLUCERASE ALFA
     Dosage: 6000 INTERNATIONAL UNIT, Q2WEEKS
  5. VELAGLUCERASE ALFA [Suspect]
     Active Substance: VELAGLUCERASE ALFA
     Dosage: 6000 INTERNATIONAL UNIT, Q2WEEKS
  6. VELAGLUCERASE ALFA [Suspect]
     Active Substance: VELAGLUCERASE ALFA
     Dosage: 6000 INTERNATIONAL UNIT, Q2WEEKS
  7. VELAGLUCERASE ALFA [Suspect]
     Active Substance: VELAGLUCERASE ALFA
     Dosage: 6000 INTERNATIONAL UNIT, Q2WEEKS
  8. VELAGLUCERASE ALFA [Suspect]
     Active Substance: VELAGLUCERASE ALFA
     Dosage: 6000 INTERNATIONAL UNIT, Q2WEEKS

REACTIONS (17)
  - Spinal fracture [Recovering/Resolving]
  - Meniscus injury [Unknown]
  - Haemoglobin abnormal [Recovering/Resolving]
  - Back pain [Recovering/Resolving]
  - Circulatory collapse [Recovered/Resolved]
  - Pain in extremity [Recovered/Resolved]
  - Chondropathy [Unknown]
  - Effusion [Unknown]
  - Synovial cyst [Unknown]
  - Bursitis [Unknown]
  - Osteochondral fracture [Unknown]
  - Presyncope [Recovered/Resolved]
  - Feeling hot [Recovered/Resolved]
  - Walking aid user [Recovering/Resolving]
  - Arthralgia [Recovering/Resolving]
  - Dizziness [Recovered/Resolved]
  - Pain [Recovering/Resolving]

NARRATIVE: CASE EVENT DATE: 20230401
